FAERS Safety Report 24700993 (Version 1)
Quarter: 2024Q4

REPORT INFORMATION
  Report Type: Spontaneous
  Country: US (occurrence: US)
  Receive Date: 20241205
  Receipt Date: 20241205
  Transmission Date: 20250115
  Serious: No
  Sender: SAGE
  Company Number: US-SAGE-2024SAGE000111

PATIENT
  Age: 4 Year

DRUGS (1)
  1. ZULRESSO [Suspect]
     Active Substance: BREXANOLONE
     Indication: Product used for unknown indication
     Dosage: UNK
     Route: 042
     Dates: start: 20241111, end: 20241116

REACTIONS (3)
  - Sleep disorder [Unknown]
  - Off label use [Unknown]
  - Incorrect product administration duration [Unknown]

NARRATIVE: CASE EVENT DATE: 20241111
